FAERS Safety Report 21519264 (Version 1)
Quarter: 2022Q4

REPORT INFORMATION
  Report Type: Spontaneous
  Country: US (occurrence: None)
  Receive Date: 20221027
  Receipt Date: 20221027
  Transmission Date: 20230112
  Serious: No
  Sender: FDA-Public Use
  Company Number: None

PATIENT
  Age: 74 Year
  Sex: Female
  Weight: 72.57 kg

DRUGS (10)
  1. EZETIMIBE [Suspect]
     Active Substance: EZETIMIBE
  2. GLIPIZIDE [Concomitant]
     Active Substance: GLIPIZIDE
  3. ALBUTEROL [Concomitant]
     Active Substance: ALBUTEROL
  4. LISINOPRIL [Concomitant]
     Active Substance: LISINOPRIL
  5. LORATADINE [Concomitant]
     Active Substance: LORATADINE
  6. METFORMIN [Concomitant]
     Active Substance: METFORMIN HYDROCHLORIDE
  7. METOPROLOL [Concomitant]
     Active Substance: METOPROLOL
  8. MONTELUKAST [Concomitant]
     Active Substance: MONTELUKAST SODIUM
  9. Culterelle Probiotic [Concomitant]
  10. Hair, Skin + Nail Gummys [Concomitant]

REACTIONS (4)
  - Myalgia [None]
  - Discomfort [None]
  - Joint range of motion decreased [None]
  - Mobility decreased [None]

NARRATIVE: CASE EVENT DATE: 20220829
